FAERS Safety Report 10387473 (Version 1)
Quarter: 2014Q3

REPORT INFORMATION
  Report Type: Spontaneous
  Country: US (occurrence: US)
  Receive Date: 20140815
  Receipt Date: 20140815
  Transmission Date: 20150326
  Serious: No
  Sender: FDA-Public Use
  Company Number: US-TARO-2013P1017579

PATIENT
  Sex: Male

DRUGS (2)
  1. LAMISIL AT [Suspect]
     Active Substance: TERBINAFINE HYDROCHLORIDE
     Dosage: QD
     Route: 061
  2. LAMISIL [Suspect]
     Active Substance: TERBINAFINE HYDROCHLORIDE
     Dosage: BID
     Route: 061
     Dates: start: 201306, end: 2013

REACTIONS (1)
  - Drug ineffective [Not Recovered/Not Resolved]

NARRATIVE: CASE EVENT DATE: 201306
